FAERS Safety Report 19713633 (Version 1)
Quarter: 2021Q3

REPORT INFORMATION
  Report Type: Report from Study
  Country: None (occurrence: AU)
  Receive Date: 20210818
  Receipt Date: 20210818
  Transmission Date: 20211014
  Serious: Yes (Hospitalization)
  Sender: FDA-Public Use
  Company Number: AU-ABBVIE-21K-008-4034952-00

PATIENT
  Age: 54 Year
  Sex: Male

DRUGS (3)
  1. LUCRIN DEPOT [Suspect]
     Active Substance: LEUPROLIDE ACETATE
     Indication: PROSTATE CANCER
     Route: 030
     Dates: start: 20210707
  2. ASTRAZENECA COVID?19 VACCINE [Concomitant]
     Active Substance: AZD-1222
     Indication: COVID-19 IMMUNISATION
     Dosage: FIRST DOSE
     Route: 030
  3. ASTRAZENECA COVID?19 VACCINE [Concomitant]
     Active Substance: AZD-1222
     Dosage: SECOND DOSE
     Route: 030
     Dates: start: 20210728, end: 20210728

REACTIONS (2)
  - Weight decreased [Recovering/Resolving]
  - Migraine [Recovering/Resolving]

NARRATIVE: CASE EVENT DATE: 202107
